FAERS Safety Report 9907607 (Version 2)
Quarter: 2015Q3

REPORT INFORMATION
  Report Type: Spontaneous
  Country: US (occurrence: US)
  Receive Date: 20140219
  Receipt Date: 20150731
  Transmission Date: 20151125
  Serious: Yes (Hospitalization)
  Sender: FDA-Public Use
  Company Number: US-AMGEN-USASP2014011129

PATIENT
  Age: 41 Year
  Sex: Female

DRUGS (6)
  1. ENBREL [Suspect]
     Active Substance: ETANERCEPT
     Indication: OSTEOARTHRITIS
     Dosage: UNK UNK, QWK
     Route: 065
     Dates: start: 2008, end: 2015
  2. ENBREL [Suspect]
     Active Substance: ETANERCEPT
     Indication: ARTHRITIS
  3. HUMIRA [Concomitant]
     Active Substance: ADALIMUMAB
     Dosage: UNK
  4. ENBREL [Suspect]
     Active Substance: ETANERCEPT
     Indication: PSORIASIS
  5. ENBREL [Suspect]
     Active Substance: ETANERCEPT
     Indication: PSORIATIC ARTHROPATHY
  6. TEMOVATE E [Concomitant]
     Active Substance: CLOBETASOL PROPIONATE
     Indication: SKIN DISORDER
     Dosage: UNK

REACTIONS (13)
  - Rhinorrhoea [Unknown]
  - Unevaluable event [Unknown]
  - Reaction to preservatives [Unknown]
  - Hypersensitivity [Unknown]
  - Injection site erythema [Unknown]
  - Respiratory tract congestion [Unknown]
  - Osteoarthritis [Not Recovered/Not Resolved]
  - Cough [Unknown]
  - Influenza [Recovered/Resolved]
  - Drug ineffective [Unknown]
  - Injection site rash [Unknown]
  - Injection site pruritus [Unknown]
  - Thyroid cancer [Recovered/Resolved]

NARRATIVE: CASE EVENT DATE: 200903
